FAERS Safety Report 4759919-4 (Version None)
Quarter: 2005Q3

REPORT INFORMATION
  Report Type: 
  Country: None (occurrence: None)
  Receive Date: 20050902
  Receipt Date: 20050729
  Transmission Date: 20060218
  Serious: Yes (Hospitalization)
  Sender: FDA-Public Use
  Company Number: US-BRISTOL-MYERS SQUIBB COMPANY-13058185

PATIENT
  Age: 70 Year
  Sex: Male

DRUGS (9)
  1. ERBITUX [Suspect]
     Indication: NON-SMALL CELL LUNG CANCER
     Route: 042
     Dates: start: 20050609, end: 20050609
  2. CARBOPLATIN [Suspect]
     Indication: NON-SMALL CELL LUNG CANCER
     Route: 042
     Dates: start: 20050609, end: 20050609
  3. TAXOTERE [Suspect]
     Indication: NON-SMALL CELL LUNG CANCER
     Route: 042
     Dates: start: 20050609, end: 20050609
  4. AMBIEN [Concomitant]
     Dates: start: 20050628
  5. LORTAB [Concomitant]
     Dates: start: 20050609
  6. PROTONIX [Concomitant]
     Dates: start: 20050601
  7. REGLAN [Concomitant]
     Dates: start: 20050630
  8. KYTRIL [Concomitant]
     Dates: start: 20050601
  9. MINOCIN [Concomitant]

REACTIONS (4)
  - DEHYDRATION [None]
  - DIARRHOEA [None]
  - HYPONATRAEMIA [None]
  - NEUTROPENIA [None]
